FAERS Safety Report 6944746-X (Version None)
Quarter: 2010Q3

REPORT INFORMATION
  Report Type: 
  Country: None (occurrence: None)
  Receive Date: 20100827
  Receipt Date: 20100818
  Transmission Date: 20110219
  Serious: Yes (Hospitalization)
  Sender: FDA-Public Use
  Company Number: GB-ASTRAZENECA-2010SE38757

PATIENT
  Age: 88 Year
  Sex: Female
  Weight: 39.2 kg

DRUGS (4)
  1. OMEPRAZOLE [Suspect]
     Route: 048
     Dates: start: 20100804, end: 20100804
  2. ASPIRIN [Concomitant]
  3. FUROSEMIDE [Concomitant]
  4. SLOW-K [Concomitant]

REACTIONS (5)
  - CONJUNCTIVITIS [None]
  - OEDEMA MOUTH [None]
  - ORAL DISORDER [None]
  - SKIN LESION [None]
  - STEVENS-JOHNSON SYNDROME [None]
